FAERS Safety Report 8902968 (Version 1)
Quarter: 2012Q4

REPORT INFORMATION
  Report Type: Report from Study
  Country: IT (occurrence: IT)
  Receive Date: 20121113
  Receipt Date: 20121113
  Transmission Date: 20130627
  Serious: Yes (Other)
  Sender: FDA-Public Use
  Company Number: IT-PFIZER INC-2010024022

PATIENT
  Sex: Female
  Weight: 2.21 kg

DRUGS (4)
  1. NELFINAVIR MESILATE [Suspect]
     Indication: HIV INFECTION
     Dosage: UNK
  2. TENOFOVIR [Suspect]
     Indication: HIV INFECTION
     Dosage: UNK
  3. LAMIVUDINE [Suspect]
     Indication: HIV INFECTION
     Dosage: UNK
  4. ZIDOVUDINE [Concomitant]

REACTIONS (3)
  - Infantile apnoeic attack [Unknown]
  - Cyanosis [Unknown]
  - Low birth weight baby [Unknown]
